FAERS Safety Report 9706009 (Version 1)
Quarter: 2013Q4

REPORT INFORMATION
  Report Type: Spontaneous
  Country: MX (occurrence: MX)
  Receive Date: 20131122
  Receipt Date: 20131122
  Transmission Date: 20140711
  Serious: Yes (Disabling)
  Sender: FDA-Public Use
  Company Number: MX-B.I. PHARMACEUTICALS,INC./RIDGEFIELD-2013-BI-37943MX

PATIENT
  Age: 57 Year
  Sex: Female

DRUGS (1)
  1. TRAYENTA DUO [Suspect]
     Dosage: 0-0-2
     Dates: start: 201305

REACTIONS (1)
  - Blood glucose increased [Unknown]
